FAERS Safety Report 7276016-7 (Version None)
Quarter: 2011Q1

REPORT INFORMATION
  Report Type: 
  Country: None (occurrence: None)
  Receive Date: 20110204
  Receipt Date: 20110126
  Transmission Date: 20110831
  Serious: Yes (Hospitalization)
  Sender: FDA-Public Use
  Company Number: B0696819A

PATIENT
  Sex: Female
  Weight: 67 kg

DRUGS (24)
  1. ALKERAN [Suspect]
     Indication: STEM CELL TRANSPLANT
     Dosage: 100MGM2 PER DAY
     Route: 042
     Dates: start: 20100510, end: 20100511
  2. SELBEX [Concomitant]
     Dosage: 150MG PER DAY
     Route: 048
  3. PROBIOTIC [Concomitant]
     Dosage: 3G PER DAY
     Route: 048
     Dates: start: 20100517, end: 20100525
  4. OMEPRAL [Concomitant]
     Dosage: 20MG PER DAY
     Route: 048
     Dates: start: 20100513, end: 20100610
  5. MAXIPIME [Concomitant]
     Dosage: 2G PER DAY
     Route: 042
     Dates: start: 20100517, end: 20100520
  6. ZOVIRAX [Concomitant]
     Dosage: 1000MG PER DAY
     Route: 048
     Dates: start: 20100506, end: 20100616
  7. MYSLEE [Concomitant]
     Dosage: 5MG PER DAY
     Route: 048
     Dates: start: 20100513, end: 20100628
  8. OXYCONTIN [Concomitant]
     Dosage: 10MG PER DAY
     Route: 048
     Dates: start: 20100513, end: 20100629
  9. CIPROFLOXACIN HCL [Concomitant]
     Dosage: 600MG PER DAY
     Route: 042
     Dates: start: 20100522, end: 20100525
  10. OXINORM [Concomitant]
     Dosage: 2.5MG PER DAY
     Route: 048
     Dates: start: 20100513, end: 20100629
  11. SOL-MELCORT [Concomitant]
     Dosage: 1000MG PER DAY
     Route: 042
     Dates: start: 20100520, end: 20100522
  12. VANCOMYCIN [Concomitant]
     Dosage: 2000MG PER DAY
     Route: 042
     Dates: start: 20100520, end: 20100525
  13. ADENOSINE [Concomitant]
     Dosage: 600MG PER DAY
     Dates: start: 20100611, end: 20100624
  14. NEUTROGIN [Suspect]
     Dates: start: 20100508, end: 20100526
  15. URSO 250 [Concomitant]
     Dosage: 300MG PER DAY
     Route: 048
     Dates: start: 20100513
  16. DIFLUCAN [Concomitant]
     Dosage: 200MG PER DAY
     Route: 048
     Dates: start: 20100505, end: 20100520
  17. ALOSITOL [Concomitant]
     Dosage: 100MG PER DAY
     Route: 048
     Dates: start: 20100507, end: 20100526
  18. ANTITHROMBIN [Concomitant]
     Dosage: 1.5IU3 PER DAY
     Route: 042
     Dates: start: 20100520, end: 20100521
  19. FUROSEMIDE [Concomitant]
     Dosage: 20MG PER DAY
     Route: 042
     Dates: start: 20100521, end: 20100527
  20. PRODIF [Concomitant]
     Dosage: 200MG PER DAY
     Route: 042
     Dates: start: 20100520, end: 20100525
  21. VENOGLOBULIN [Concomitant]
     Dosage: 5G PER DAY
     Route: 042
     Dates: start: 20100520, end: 20100522
  22. SOLDACTONE [Concomitant]
     Dosage: 200MG PER DAY
     Route: 042
     Dates: start: 20100521, end: 20100527
  23. NEO-MINOPHAGEN-C [Concomitant]
     Dosage: 40ML PER DAY
     Route: 042
     Dates: start: 20100611, end: 20100615
  24. MEROPENEM [Concomitant]
     Dosage: 2G PER DAY
     Route: 042
     Dates: start: 20100604, end: 20100609

REACTIONS (2)
  - DISSEMINATED INTRAVASCULAR COAGULATION [None]
  - HISTIOCYTOSIS HAEMATOPHAGIC [None]
